FAERS Safety Report 6262910-2 (Version None)
Quarter: 2009Q3

REPORT INFORMATION
  Report Type: 
  Country: None (occurrence: None)
  Receive Date: 20090708
  Receipt Date: 20090622
  Transmission Date: 20100115
  Serious: Yes (Other)
  Sender: FDA-Public Use
  Company Number: 2009BI019778

PATIENT
  Age: 49 Year
  Sex: Female

DRUGS (4)
  1. ZEVALIN [Suspect]
     Indication: NON-HODGKIN'S LYMPHOMA
  2. CYCLOSPORINE [Concomitant]
  3. FLUDARABINE PHOSPHATE [Concomitant]
  4. PREV MEDS [Concomitant]

REACTIONS (3)
  - AGRANULOCYTOSIS [None]
  - MUCOSAL INFLAMMATION [None]
  - PYREXIA [None]
